FAERS Safety Report 5144083-2 (Version None)
Quarter: 2006Q4

REPORT INFORMATION
  Report Type: 
  Country: None (occurrence: None)
  Receive Date: 20061106
  Receipt Date: 20061025
  Transmission Date: 20070319
  Serious: Yes (Hospitalization)
  Sender: FDA-Public Use
  Company Number: FR-GLAXOSMITHKLINE-B0444443A

PATIENT
  Age: 86 Year
  Sex: Male

DRUGS (12)
  1. AUGMENTIN '125' [Suspect]
     Indication: URINARY TRACT INFECTION
     Dates: start: 20060731, end: 20060804
  2. CIFLOX [Suspect]
     Indication: URINARY TRACT INFECTION
     Route: 048
     Dates: start: 20060731, end: 20060804
  3. ZOMETA [Suspect]
     Route: 042
     Dates: start: 20060802, end: 20060802
  4. PREVISCAN [Suspect]
     Indication: VISUAL DISTURBANCE
     Route: 048
     Dates: start: 20060802, end: 20060807
  5. MOTILIUM [Suspect]
     Indication: VOMITING
     Route: 048
     Dates: start: 20060731, end: 20060807
  6. REMINYL [Concomitant]
     Indication: AGGRESSION
     Route: 048
     Dates: start: 20060731, end: 20060807
  7. RENITEC [Concomitant]
     Route: 065
  8. TENORMIN [Concomitant]
     Route: 065
  9. NEXIUM [Concomitant]
     Route: 065
  10. OSTRAM [Concomitant]
     Route: 065
  11. CONTRAMAL [Concomitant]
     Route: 065
  12. EQUANIL [Concomitant]
     Indication: AGGRESSION
     Route: 065

REACTIONS (3)
  - EOSINOPHILIA [None]
  - PYREXIA [None]
  - RASH ERYTHEMATOUS [None]
